FAERS Safety Report 10252283 (Version 1)
Quarter: 2014Q2

REPORT INFORMATION
  Report Type: Spontaneous
  Country: US (occurrence: None)
  Receive Date: 20140620
  Receipt Date: 20140620
  Transmission Date: 20141212
  Serious: Yes (Life-Threatening, Hospitalization)
  Sender: FDA-Public Use
  Company Number: None

PATIENT
  Age: 25 Year
  Sex: Female
  Weight: 86.45 kg

DRUGS (10)
  1. BLOXIVERZ [Suspect]
     Indication: NEUROMUSCULAR BLOCKADE REVERSAL
     Route: 042
     Dates: start: 20140618
  2. GLYCOPYRROLATE [Suspect]
     Indication: NEUROMUSCULAR BLOCKADE REVERSAL
     Route: 042
     Dates: start: 20140618
  3. BUPIVACAINE [Concomitant]
  4. DESFLURANE [Concomitant]
  5. DEXAMETHASONE [Concomitant]
  6. FENTANYL [Concomitant]
  7. METOCLOPRAMIDE [Concomitant]
  8. ONDANSETRON [Concomitant]
  9. PROPOFOL [Concomitant]
  10. ROCURONIUM [Concomitant]

REACTIONS (6)
  - Sinus arrest [None]
  - Cardiac arrest [None]
  - Hypotension [None]
  - Fatigue [None]
  - Product substitution issue [None]
  - Product formulation issue [None]
